FAERS Safety Report 6612166-3 (Version None)
Quarter: 2010Q1

REPORT INFORMATION
  Report Type: 
  Country: None (occurrence: None)
  Receive Date: 20100222
  Receipt Date: 20090421
  Transmission Date: 20100710
  Serious: Yes (Other)
  Sender: FDA-Public Use
  Company Number: ALA_00282_2009

PATIENT
  Sex: Male

DRUGS (2)
  1. ROWASA [Suspect]
     Indication: PROCTITIS ULCERATIVE
     Dosage: (4 G, EVERY NIGHT AT BEDTIME RECTAL)
     Route: 054
     Dates: start: 20090301, end: 20090406
  2. MULTIPLE DIETARY SUPPLEMENTS [Concomitant]

REACTIONS (6)
  - DEFAECATION URGENCY [None]
  - DRUG INEFFECTIVE [None]
  - FAECAL INCONTINENCE [None]
  - FREQUENT BOWEL MOVEMENTS [None]
  - PRODUCT QUALITY ISSUE [None]
  - RECTAL HAEMORRHAGE [None]
